FAERS Safety Report 5043391-3 (Version None)
Quarter: 2006Q3

REPORT INFORMATION
  Report Type: 
  Country: None (occurrence: None)
  Receive Date: 20060705
  Receipt Date: 20060619
  Transmission Date: 20061208
  Serious: Yes (Hospitalization)
  Sender: FDA-Public Use
  Company Number: FR-MERCK-0606FRA00047

PATIENT
  Age: 75 Year
  Sex: Female

DRUGS (4)
  1. ZOCOR [Suspect]
     Route: 048
     Dates: end: 20060410
  2. HYDROCHLOROTHIAZIDE AND VALSARTAN [Concomitant]
     Indication: HYPERTENSION
     Route: 048
  3. RILMENIDINE PHOSPHATE [Concomitant]
     Route: 048
  4. RABEPRAZOLE SODIUM [Concomitant]
     Route: 048

REACTIONS (1)
  - PLEURAL EFFUSION [None]
